FAERS Safety Report 6417010-5 (Version None)
Quarter: 2009Q4

REPORT INFORMATION
  Report Type: 
  Country: None (occurrence: None)
  Receive Date: 20091023
  Receipt Date: 20091008
  Transmission Date: 20100525
  Serious: Yes (Other)
  Sender: FDA-Public Use
  Company Number: 8053382

PATIENT
  Sex: Female

DRUGS (3)
  1. PREDNISOLONE [Suspect]
     Indication: LOWER RESPIRATORY TRACT INFECTION
  2. AUGMENTIN [Suspect]
     Indication: LOWER RESPIRATORY TRACT INFECTION
  3. CHAMPIX [Suspect]
     Indication: SMOKING CESSATION THERAPY

REACTIONS (2)
  - DRUG EFFECT DECREASED [None]
  - LOWER RESPIRATORY TRACT INFECTION [None]
